FAERS Safety Report 6407058-9 (Version None)
Quarter: 2009Q4

REPORT INFORMATION
  Report Type: 
  Country: None (occurrence: None)
  Receive Date: 20091020
  Receipt Date: 20091014
  Transmission Date: 20100525
  Serious: Yes (Death, Other)
  Sender: FDA-Public Use
  Company Number: PHEH2009US11676

PATIENT
  Sex: Male
  Weight: 50.34 kg

DRUGS (9)
  1. EXJADE [Suspect]
     Indication: MYELODYSPLASTIC SYNDROME
     Dosage: 1250 MG, DAILY
     Route: 048
     Dates: start: 20080601
  2. EXJADE [Suspect]
     Indication: IRON OVERLOAD
     Dosage: UNK
     Route: 048
     Dates: end: 20080901
  3. EXJADE [Suspect]
     Dosage: UNK
     Dates: start: 20081001
  4. EXJADE [Suspect]
     Dosage: 250MG DAILY
     Route: 048
     Dates: start: 20090501
  5. COMBIVENT                               /GFR/ [Concomitant]
  6. ADVAIR DISKUS 100/50 [Concomitant]
  7. VITAMIN B-12 [Concomitant]
     Dosage: UNK
  8. MULTI-VITAMINS [Concomitant]
  9. SPIRIVA [Concomitant]

REACTIONS (17)
  - BLOOD IRON ABNORMAL [None]
  - DECREASED APPETITE [None]
  - DELIRIUM [None]
  - DIARRHOEA [None]
  - EARLY SATIETY [None]
  - EPIGASTRIC DISCOMFORT [None]
  - FALL [None]
  - GASTROINTESTINAL DISORDER [None]
  - HEPATOSPLENOMEGALY [None]
  - HIP FRACTURE [None]
  - HIP SURGERY [None]
  - MALIGNANT NEOPLASM PROGRESSION [None]
  - NEPHROLITHIASIS [None]
  - PAIN [None]
  - RENAL STONE REMOVAL [None]
  - SERUM FERRITIN INCREASED [None]
  - WEIGHT DECREASED [None]
